FAERS Safety Report 5748353-6 (Version None)
Quarter: 2008Q2

REPORT INFORMATION
  Report Type: 
  Country: None (occurrence: None)
  Receive Date: 20080523
  Receipt Date: 20080515
  Transmission Date: 20081010
  Serious: Yes (Other)
  Sender: FDA-Public Use
  Company Number: BR-PFIZER INC-2008034652

PATIENT
  Sex: Female

DRUGS (6)
  1. CELEBRA [Suspect]
     Indication: PAIN
     Route: 048
  2. PIROXICAM [Suspect]
     Route: 048
  3. RIVOTRIL [Concomitant]
     Route: 048
  4. OMEPRAZOLE [Concomitant]
     Route: 048
  5. ASPIRIN [Concomitant]
     Route: 048
  6. CARBAMAZEPINE [Concomitant]
     Route: 048

REACTIONS (15)
  - BLOOD CHOLESTEROL INCREASED [None]
  - BLOOD PRESSURE INCREASED [None]
  - BLOOD TRIGLYCERIDES INCREASED [None]
  - BURNING SENSATION [None]
  - CEREBRAL THROMBOSIS [None]
  - CHONDROPATHY [None]
  - DRUG INEFFECTIVE [None]
  - FALL [None]
  - HEAD INJURY [None]
  - HYPERHIDROSIS [None]
  - MENTAL IMPAIRMENT [None]
  - OEDEMA MOUTH [None]
  - PAIN [None]
  - SUICIDAL IDEATION [None]
  - TREATMENT NONCOMPLIANCE [None]
